FAERS Safety Report 8004910-8 (Version None)
Quarter: 2011Q4

REPORT INFORMATION
  Report Type: 
  Country: None (occurrence: None)
  Receive Date: 20111219
  Receipt Date: 20111213
  Transmission Date: 20120403
  Serious: Yes (Other)
  Sender: FDA-Public Use
  Company Number: 2011SP056998

PATIENT
  Sex: Female

DRUGS (4)
  1. FOLLITROPIN BETA (FOLLITROPIN BETA  /01348901/) [Suspect]
  2. CHORIONIC GONADOTROPIN [Suspect]
  3. CHORIONIC GONADOTROPIN [Suspect]
  4. FOLLICLE STIMULATING HORMONE [Suspect]

REACTIONS (3)
  - MATERNAL EXPOSURE DURING PREGNANCY [None]
  - OVARIAN HYPERSTIMULATION SYNDROME [None]
  - ABORTION SPONTANEOUS [None]
